FAERS Safety Report 13699133 (Version 1)
Quarter: 2017Q2

REPORT INFORMATION
  Report Type: Spontaneous
  Country: US (occurrence: US)
  Receive Date: 20170628
  Receipt Date: 20170628
  Transmission Date: 20170830
  Serious: Yes (Hospitalization)
  Sender: FDA-Public Use
  Company Number: US-INCYTE CORPORATION-2017IN004999

PATIENT

DRUGS (5)
  1. LORAZEPAM. [Concomitant]
     Active Substance: LORAZEPAM
     Indication: PRODUCT USED FOR UNKNOWN INDICATION
  2. JAKAFI [Suspect]
     Active Substance: RUXOLITINIB
     Indication: NEOPLASM MALIGNANT
     Dosage: 20 MG, BID
     Route: 048
     Dates: start: 20170607, end: 20170707
  3. METOPROLOL. [Concomitant]
     Active Substance: METOPROLOL
     Indication: PRODUCT USED FOR UNKNOWN INDICATION
  4. LASIX [Concomitant]
     Active Substance: FUROSEMIDE
     Indication: PRODUCT USED FOR UNKNOWN INDICATION
  5. VITAMIN C [Concomitant]
     Active Substance: ASCORBIC ACID
     Indication: PRODUCT USED FOR UNKNOWN INDICATION

REACTIONS (4)
  - Contusion [Not Recovered/Not Resolved]
  - Anaemia [Unknown]
  - Increased tendency to bruise [Unknown]
  - Off label use [Unknown]

NARRATIVE: CASE EVENT DATE: 20170615
